FAERS Safety Report 10211283 (Version 3)
Quarter: 2014Q2

REPORT INFORMATION
  Report Type: Spontaneous
  Country: PL (occurrence: PL)
  Receive Date: 20140602
  Receipt Date: 20140610
  Transmission Date: 20141212
  Serious: Yes (Hospitalization)
  Sender: FDA-Public Use
  Company Number: PHHY2014PL066945

PATIENT
  Age: 61 Year
  Sex: Female

DRUGS (5)
  1. CICLOSPORIN [Suspect]
     Indication: ANTISYNTHETASE SYNDROME
  2. METHOTREXATE [Suspect]
  3. METHYLPREDNISOLONE [Suspect]
  4. CYCLOPHOSPHAMIDE [Concomitant]
  5. GLUCOCORTICOIDS [Concomitant]

REACTIONS (3)
  - General physical health deterioration [Unknown]
  - Muscle disorder [Unknown]
  - Therapeutic response decreased [Unknown]
